FAERS Safety Report 12713767 (Version 1)
Quarter: 2016Q3

REPORT INFORMATION
  Report Type: Report from Study
  Country: VN (occurrence: VN)
  Receive Date: 20160904
  Receipt Date: 20160904
  Transmission Date: 20161109
  Serious: Yes (Death, Hospitalization)
  Sender: FDA-Public Use
  Company Number: PHHY2016VN120250

PATIENT
  Age: 38 Year
  Sex: Male

DRUGS (1)
  1. GLIVEC [Suspect]
     Active Substance: IMATINIB MESYLATE
     Indication: CHRONIC MYELOID LEUKAEMIA
     Dosage: 400 MG, QD
     Route: 048
     Dates: start: 20160427, end: 20160826

REACTIONS (7)
  - Blast crisis in myelogenous leukaemia [Fatal]
  - Coagulopathy [Fatal]
  - Platelet count decreased [Fatal]
  - Cerebral haemorrhage [Fatal]
  - Blast cell count increased [Unknown]
  - White blood cell count increased [Unknown]
  - Cardiac arrest [Fatal]

NARRATIVE: CASE EVENT DATE: 20160817
